FAERS Safety Report 8553980-7 (Version None)
Quarter: 2012Q3

REPORT INFORMATION
  Report Type: 
  Country: None (occurrence: None)
  Receive Date: 20120731
  Receipt Date: 20120716
  Transmission Date: 20120928
  Serious: Yes (Other)
  Sender: FDA-Public Use
  Company Number: US-WATSON-2012-12472

PATIENT
  Age: 46 Year
  Sex: Male

DRUGS (1)
  1. HYDROCODONE BITARTRATE + ACETAMINOPHEN [Suspect]
     Indication: FIBROMYALGIA
     Dosage: UNK
     Route: 065
     Dates: start: 20080101

REACTIONS (3)
  - LUNG SQUAMOUS CELL CARCINOMA STAGE UNSPECIFIED [None]
  - ADRENAL NEOPLASM [None]
  - NEOPLASM MALIGNANT [None]
